FAERS Safety Report 11313877 (Version 1)
Quarter: 2015Q3

REPORT INFORMATION
  Report Type: Spontaneous
  Country: US (occurrence: US)
  Receive Date: 20150727
  Receipt Date: 20150727
  Transmission Date: 20151125
  Serious: No
  Sender: FDA-Public Use
  Company Number: US-ABBVIE-15P-163-1407410-00

PATIENT
  Sex: Female

DRUGS (1)
  1. SYNTHROID [Suspect]
     Active Substance: LEVOTHYROXINE SODIUM
     Indication: HYPOTHYROIDISM
     Route: 048
     Dates: start: 201306, end: 2015

REACTIONS (6)
  - Hypersensitivity [Unknown]
  - Adverse drug reaction [Unknown]
  - Abdominal discomfort [Not Recovered/Not Resolved]
  - Urticaria [Not Recovered/Not Resolved]
  - Product coating issue [Unknown]
  - Drug ineffective [Unknown]

NARRATIVE: CASE EVENT DATE: 201505
